FAERS Safety Report 15504510 (Version 1)
Quarter: 2018Q4

REPORT INFORMATION
  Report Type: Spontaneous
  Country: IT (occurrence: IT)
  Receive Date: 20181016
  Receipt Date: 20181016
  Transmission Date: 20190205
  Serious: Yes (Hospitalization)
  Sender: FDA-Public Use
  Company Number: IT-SA-2018SA278163

PATIENT
  Age: 27 Year
  Sex: Male

DRUGS (6)
  1. CARVEDILOL. [Suspect]
     Active Substance: CARVEDILOL
     Indication: INTENTIONAL SELF-INJURY
     Dosage: 30 DF, TOTAL
     Route: 048
  2. OPTALIDON [BUTALBITAL;CAFFEINE;PROPYPHENAZONE] [Suspect]
     Active Substance: BUTALBITAL\CAFFEINE\PROPYPHENAZONE
     Indication: INTENTIONAL SELF-INJURY
     Dosage: 32 DF, TOTAL
     Route: 048
  3. ZOLPIDEM TARTRATE. [Suspect]
     Active Substance: ZOLPIDEM TARTRATE
     Indication: INTENTIONAL SELF-INJURY
     Dosage: 30 DF, TOTAL
     Route: 048
  4. TRIAZOLAM. [Suspect]
     Active Substance: TRIAZOLAM
     Indication: INTENTIONAL SELF-INJURY
     Dosage: 10 DF, TOTAL
     Route: 048
  5. ALPRAZOLAM. [Suspect]
     Active Substance: ALPRAZOLAM
     Indication: INTENTIONAL SELF-INJURY
     Dosage: 20 DF, TOTAL
     Route: 048
  6. TRAMADOL HYDROCHLORIDE. [Suspect]
     Active Substance: TRAMADOL HYDROCHLORIDE
     Indication: INTENTIONAL SELF-INJURY
     Dosage: 20 ML, TOTAL
     Route: 048

REACTIONS (8)
  - Oxygen saturation decreased [Unknown]
  - Blood creatine phosphokinase increased [Unknown]
  - Sopor [Unknown]
  - Intentional overdose [Unknown]
  - Hypotension [Unknown]
  - Intentional self-injury [Unknown]
  - Hyporesponsive to stimuli [Unknown]
  - Blood creatinine increased [Unknown]

NARRATIVE: CASE EVENT DATE: 20180610
